FAERS Safety Report 20792072 (Version 2)
Quarter: 2024Q3

REPORT INFORMATION
  Report Type: Spontaneous
  Country: US (occurrence: US)
  Receive Date: 20220505
  Receipt Date: 20240731
  Transmission Date: 20241017
  Serious: No
  Sender: PFIZER
  Company Number: US-PFIZER INC-2019196288

PATIENT
  Age: 78 Year
  Sex: Female
  Weight: 77.11 kg

DRUGS (1)
  1. XELJANZ XR [Suspect]
     Active Substance: TOFACITINIB CITRATE
     Indication: Rheumatoid arthritis
     Dosage: 11 MG (ONE TIME)
     Route: 048

REACTIONS (2)
  - Condition aggravated [Unknown]
  - Sinusitis [Unknown]

NARRATIVE: CASE EVENT DATE: 20220101
